FAERS Safety Report 4402760-2 (Version None)
Quarter: 2004Q3

REPORT INFORMATION
  Report Type: 
  Country: None (occurrence: None)
  Receive Date: 20040720
  Receipt Date: 20040720
  Transmission Date: 20050211
  Serious: Yes (Other)
  Sender: FDA-Public Use
  Company Number: None

PATIENT
  Age: 66 Year
  Sex: Female
  Weight: 91.6266 kg

DRUGS (10)
  1. BIVALIRUDIN MEDICINES COMPANY [Suspect]
     Indication: ACUTE CORONARY SYNDROME
     Dosage: 0.1 MG/KG BOLUS IV
     Route: 040
     Dates: start: 20040630, end: 20040701
  2. BIVALIRUDIN MEDICINES COMPANY [Suspect]
     Indication: ACUTE CORONARY SYNDROME
     Dosage: 0.25 MG/KG IV
     Route: 042
     Dates: start: 20040630, end: 20040701
  3. PLAVIX [Concomitant]
  4. LOPRESSOR [Concomitant]
  5. LIPITOR [Concomitant]
  6. LOVENOX [Concomitant]
  7. VASOTEC [Concomitant]
  8. PROTONIX [Concomitant]
  9. NITROPASTE [Concomitant]
  10. ASPIRIN [Concomitant]

REACTIONS (2)
  - INTERNATIONAL NORMALISED RATIO INCREASED [None]
  - PROTHROMBIN TIME PROLONGED [None]
